FAERS Safety Report 9208726 (Version 1)
Quarter: 2013Q1

REPORT INFORMATION
  Report Type: Spontaneous
  Country: US (occurrence: None)
  Receive Date: 20130228
  Receipt Date: 20130228
  Transmission Date: 20140127
  Serious: Yes (Hospitalization)
  Sender: FDA-Public Use
  Company Number: ACO_34363_2013

PATIENT
  Age: 53 Year
  Sex: Male

DRUGS (1)
  1. AMPYRA (DALFAMPRIDINE) TABLET, 10MG [Suspect]
     Indication: GAIT DISTURBANCE
     Route: 048
     Dates: start: 20120215, end: 201211

REACTIONS (4)
  - Bladder disorder [None]
  - Clostridial infection [None]
  - Oedema peripheral [None]
  - Urinary tract infection [None]
